FAERS Safety Report 17596631 (Version 1)
Quarter: 2020Q1

REPORT INFORMATION
  Report Type: Spontaneous
  Country: FR (occurrence: FR)
  Receive Date: 20200330
  Receipt Date: 20200330
  Transmission Date: 20200409
  Serious: Yes (Hospitalization, Other)
  Sender: FDA-Public Use
  Company Number: FR-AUROBINDO-AUR-APL-2020-015820

PATIENT
  Age: 78 Year
  Sex: Female
  Weight: 77 kg

DRUGS (3)
  1. TAZOCILLINE [Suspect]
     Active Substance: PIPERACILLIN SODIUM\TAZOBACTAM SODIUM
     Indication: LUNG DISORDER
     Dosage: UNK, 16G/2G PAR JOUR
     Route: 042
     Dates: start: 20190901, end: 20190901
  2. LINEZOLID. [Suspect]
     Active Substance: LINEZOLID
     Indication: LUNG DISORDER
     Dosage: 1200 MILLIGRAM, ONCE A DAY
     Route: 042
     Dates: start: 20190901, end: 20190903
  3. AMIKACIN. [Suspect]
     Active Substance: AMIKACIN
     Indication: LUNG DISORDER
     Dosage: 2 GRAM, ONCE A DAY
     Route: 042
     Dates: start: 20190901, end: 20190901

REACTIONS (3)
  - Coma [Recovered/Resolved]
  - Encephalopathy [Recovered/Resolved]
  - Overdose [Recovered/Resolved]

NARRATIVE: CASE EVENT DATE: 20190903
